FAERS Safety Report 21739981 (Version 1)
Quarter: 2022Q4

REPORT INFORMATION
  Report Type: Report from Study
  Country: TW (occurrence: TW)
  Receive Date: 20221216
  Receipt Date: 20221216
  Transmission Date: 20230113
  Serious: Yes (Death, Hospitalization, Other)
  Sender: FDA-Public Use
  Company Number: TW-TAKEDA-TW201803377

PATIENT
  Age: 23 Year
  Sex: Male

DRUGS (165)
  1. IDURSULFASE [Suspect]
     Active Substance: IDURSULFASE
     Indication: Mucopolysaccharidosis II
     Dosage: UNK, 1/WEEK
     Route: 042
     Dates: start: 20110113
  2. IDURSULFASE [Suspect]
     Active Substance: IDURSULFASE
     Dosage: UNK, 1/WEEK
     Route: 042
     Dates: start: 20120119, end: 20180126
  3. CHLORPHENIRAMINE MALEATE [Concomitant]
     Active Substance: CHLORPHENIRAMINE MALEATE
     Indication: Premedication
     Route: 042
  4. CHLORPHENIRAMINE MALEATE [Concomitant]
     Active Substance: CHLORPHENIRAMINE MALEATE
     Dosage: UNK
     Route: 042
     Dates: start: 20170105, end: 20171229
  5. NEOMYCIN SULFATE, POLYMYXIN B SULFATE AND BACITRACIN ZINC [Concomitant]
     Active Substance: BACITRACIN ZINC\NEOMYCIN SULFATE\POLYMYXIN B SULFATE
     Indication: Anti-infective therapy
     Dosage: UNK
     Route: 061
  6. AMBROXOL HYDROCHLORIDE [Concomitant]
     Active Substance: AMBROXOL HYDROCHLORIDE
     Indication: Respiratory disorder
     Dosage: UNK
     Route: 048
     Dates: start: 20050929
  7. SERRAPEPTASE [Concomitant]
     Active Substance: SERRAPEPTASE
     Indication: Respiratory disorder
     Dosage: UNK
     Route: 048
     Dates: start: 20070712
  8. EUFAN [Concomitant]
     Indication: Respiratory disorder
     Dosage: UNK
     Route: 048
     Dates: start: 20071011, end: 20071019
  9. COUGH MIXTURE A [Concomitant]
     Indication: Respiratory disorder
     Dosage: UNK
     Route: 048
     Dates: start: 20090922
  10. COUGH MIXTURE A [Concomitant]
     Indication: Cough
     Dosage: UNK
     Route: 048
     Dates: start: 20110804, end: 20110811
  11. COUGH MIXTURE A [Concomitant]
     Indication: Antitussive therapy
     Dosage: UNK
     Route: 048
     Dates: start: 20111006, end: 20111013
  12. COUGH MIXTURE A [Concomitant]
     Dosage: UNK
     Route: 048
     Dates: start: 20121108, end: 20121110
  13. COUGH MIXTURE A [Concomitant]
     Dosage: UNK
     Route: 048
     Dates: start: 20130131, end: 20130212
  14. COUGH MIXTURE A [Concomitant]
     Dosage: UNK
     Route: 048
     Dates: start: 20160121, end: 20160128
  15. COUGH MIXTURE A [Concomitant]
     Dosage: UNK
     Route: 048
     Dates: start: 20160121, end: 20160128
  16. COUGH MIXTURE A [Concomitant]
     Dosage: UNK
     Route: 048
     Dates: start: 20160204, end: 20160207
  17. COUGH MIXTURE A [Concomitant]
     Dosage: UNK
     Route: 048
     Dates: start: 20110714
  18. COUGH MIXTURE A [Concomitant]
     Dosage: UNK
     Route: 048
     Dates: start: 20160407, end: 20160410
  19. COUGH MIXTURE A [Concomitant]
     Dosage: UNK
     Route: 048
     Dates: start: 20160512, end: 20160515
  20. COUGH MIXTURE A [Concomitant]
     Dosage: UNK
     Route: 048
     Dates: start: 20160607, end: 20160614
  21. COUGH MIXTURE A [Concomitant]
     Dosage: UNK
     Route: 048
     Dates: start: 20161103, end: 20161108
  22. COUGH MIXTURE A [Concomitant]
     Dosage: UNK
     Route: 048
     Dates: start: 20161201, end: 20161208
  23. COUGH MIXTURE A [Concomitant]
     Dosage: UNK
     Route: 048
     Dates: start: 20170907, end: 20170912
  24. BROEN C [Concomitant]
     Indication: Anti-infective therapy
     Dosage: UNK
     Route: 048
     Dates: start: 20110714, end: 20110721
  25. BROEN C [Concomitant]
     Dosage: UNK
     Route: 048
     Dates: start: 20110804, end: 20110811
  26. DEXTROMETHORPHAN HYDROBROMIDE\LYSOZYME HYDROCHLORIDE\POTASSIUM CRESOLS [Concomitant]
     Active Substance: DEXTROMETHORPHAN HYDROBROMIDE\LYSOZYME HYDROCHLORIDE\POTASSIUM CRESOLSULFONATE
     Indication: Respiratory disorder
     Dosage: UNK
     Route: 048
     Dates: start: 20110908, end: 20110929
  27. DEXTROMETHORPHAN HYDROBROMIDE\LYSOZYME HYDROCHLORIDE\POTASSIUM CRESOLS [Concomitant]
     Active Substance: DEXTROMETHORPHAN HYDROBROMIDE\LYSOZYME HYDROCHLORIDE\POTASSIUM CRESOLSULFONATE
     Indication: Antitussive therapy
     Dosage: UNK
     Route: 048
     Dates: start: 20150929, end: 20151001
  28. DEXTROMETHORPHAN HYDROBROMIDE\LYSOZYME HYDROCHLORIDE\POTASSIUM CRESOLS [Concomitant]
     Active Substance: DEXTROMETHORPHAN HYDROBROMIDE\LYSOZYME HYDROCHLORIDE\POTASSIUM CRESOLSULFONATE
     Dosage: UNK
     Route: 048
     Dates: start: 20151001, end: 20151004
  29. AMBROXOL HYDROCHLORIDE [Concomitant]
     Active Substance: AMBROXOL HYDROCHLORIDE
     Indication: Respiratory disorder
     Dosage: UNK
     Route: 048
     Dates: start: 20110908
  30. CYPROMIN [Concomitant]
     Indication: Respiratory disorder
     Dosage: UNK
     Route: 048
     Dates: start: 20121108, end: 20121110
  31. OXACILLIN [Concomitant]
     Active Substance: OXACILLIN SODIUM
     Indication: Anti-infective therapy
     Dosage: UNK
     Route: 042
     Dates: start: 20121122, end: 20121202
  32. AUGMENTIN [Concomitant]
     Active Substance: AMOXICILLIN\CLAVULANATE POTASSIUM
     Indication: Anti-infective therapy
     Dosage: UNK
     Route: 048
     Dates: start: 20121206, end: 20130110
  33. AUGMENTIN [Concomitant]
     Active Substance: AMOXICILLIN\CLAVULANATE POTASSIUM
     Indication: Infection prophylaxis
     Dosage: UNK
     Route: 048
     Dates: start: 20160121, end: 20160128
  34. AUGMENTIN [Concomitant]
     Active Substance: AMOXICILLIN\CLAVULANATE POTASSIUM
     Dosage: UNK
     Route: 048
     Dates: start: 20160121, end: 20160128
  35. AMBROXOL [Concomitant]
     Active Substance: AMBROXOL
     Indication: Cough
     Dosage: UNK
     Route: 048
     Dates: start: 20130131, end: 20130212
  36. ACETAMINOPHEN [Concomitant]
     Active Substance: ACETAMINOPHEN
     Indication: Pain
     Dosage: UNK
     Route: 048
     Dates: start: 20130207, end: 20130212
  37. ACETAMINOPHEN [Concomitant]
     Active Substance: ACETAMINOPHEN
     Dosage: UNK
     Route: 048
     Dates: start: 20150929, end: 20151001
  38. CYPROHEPTADINE [Concomitant]
     Active Substance: CYPROHEPTADINE
     Indication: Hypersensitivity
     Dosage: UNK
     Route: 048
     Dates: start: 20130207, end: 20130212
  39. CYPROHEPTADINE [Concomitant]
     Active Substance: CYPROHEPTADINE
     Indication: Cellulitis
     Dosage: UNK
     Route: 048
     Dates: start: 20150917, end: 20150924
  40. CEPHALEXIN [Concomitant]
     Active Substance: CEPHALEXIN
     Indication: Anti-infective therapy
     Dosage: UNK
     Route: 048
     Dates: start: 20131219, end: 20131225
  41. CEPHALEXIN [Concomitant]
     Active Substance: CEPHALEXIN
     Indication: Infection
     Dosage: UNK
     Route: 048
     Dates: start: 20151224, end: 20151231
  42. CEPHALEXIN [Concomitant]
     Active Substance: CEPHALEXIN
     Indication: Infection prophylaxis
  43. AMOXICILLIN [Concomitant]
     Active Substance: AMOXICILLIN
     Indication: Anti-infective therapy
     Dosage: UNK
     Route: 048
     Dates: start: 20141002, end: 20141009
  44. AMOXICILLIN [Concomitant]
     Active Substance: AMOXICILLIN
     Dosage: UNK
     Route: 048
     Dates: start: 20150827, end: 20150903
  45. CLAVULANIC ACID [Concomitant]
     Active Substance: CLAVULANIC ACID
     Indication: Infection
     Dosage: UNK
     Route: 048
     Dates: start: 20150917, end: 20150924
  46. TETANUS TOXOIDS [Concomitant]
     Active Substance: TETANUS TOXOIDS
     Indication: Prophylaxis
     Dosage: UNK
     Route: 030
     Dates: start: 20150929, end: 20150929
  47. NEOMYCIN [Concomitant]
     Active Substance: NEOMYCIN
     Indication: Infection
     Dosage: UNK
     Route: 061
     Dates: start: 20150929, end: 20150929
  48. NEOMYCIN [Concomitant]
     Active Substance: NEOMYCIN
     Indication: Antibiotic therapy
     Dosage: UNK
     Route: 061
     Dates: start: 20170410, end: 20170414
  49. PROPOFOL [Concomitant]
     Active Substance: PROPOFOL
     Indication: Anaesthesia
     Dosage: UNK
     Route: 042
     Dates: start: 20150929, end: 20150929
  50. DEXTROMETHORPHAN [Concomitant]
     Active Substance: DEXTROMETHORPHAN
     Indication: Cough
     Dosage: UNK
     Route: 048
     Dates: start: 20150929, end: 20151004
  51. ACETAMINOPHEN [Concomitant]
     Active Substance: ACETAMINOPHEN
     Indication: Antipyresis
     Dosage: UNK
     Route: 048
     Dates: start: 20150929, end: 20150930
  52. ACETAMINOPHEN [Concomitant]
     Active Substance: ACETAMINOPHEN
     Indication: Analgesic therapy
     Dosage: UNK
     Route: 048
     Dates: start: 20170127, end: 20170130
  53. ACETAMINOPHEN [Concomitant]
     Active Substance: ACETAMINOPHEN
     Indication: Pyrexia
     Dosage: UNK
     Route: 048
     Dates: start: 20170425, end: 20170426
  54. ACETAMINOPHEN [Concomitant]
     Active Substance: ACETAMINOPHEN
     Indication: Pain prophylaxis
  55. NEOMYCIN SULFATE [Concomitant]
     Active Substance: NEOMYCIN SULFATE
     Indication: Infection prophylaxis
     Dosage: UNK
     Route: 061
     Dates: start: 20151224, end: 20151227
  56. NEOMYCIN SULFATE [Concomitant]
     Active Substance: NEOMYCIN SULFATE
     Indication: Antibiotic therapy
     Dosage: UNK
     Route: 061
     Dates: start: 20170123, end: 20170127
  57. Soonmelt [Concomitant]
     Indication: Antibiotic therapy
     Dosage: UNK
     Route: 042
     Dates: start: 20160120, end: 20160125
  58. Soonmelt [Concomitant]
     Indication: Sterilisation
     Dosage: UNK
     Route: 042
     Dates: start: 20160120, end: 20160120
  59. Soonmelt [Concomitant]
     Indication: Antiinflammatory therapy
     Dosage: UNK
     Route: 042
     Dates: start: 20170125, end: 20170127
  60. Soonmelt [Concomitant]
     Dosage: UNK
     Route: 042
     Dates: start: 20180104, end: 20180116
  61. CYPROH [Concomitant]
     Indication: Antiallergic therapy
     Dosage: UNK
     Route: 048
     Dates: start: 20160121, end: 20160128
  62. CYPROH [Concomitant]
     Indication: Antiallergic therapy
     Dosage: UNK
     Route: 048
     Dates: start: 20160204, end: 20160207
  63. CYPROH [Concomitant]
     Indication: Pruritus
     Dosage: UNK
     Route: 048
     Dates: start: 20160512, end: 20160515
  64. CYPROH [Concomitant]
     Dosage: UNK
     Route: 048
     Dates: start: 20160519, end: 20160522
  65. MUBROXOL [Concomitant]
     Indication: Secretion discharge
     Dosage: UNK
     Route: 048
     Dates: start: 20160121, end: 20160128
  66. MUBROXOL [Concomitant]
     Dosage: UNK
     Route: 048
     Dates: start: 20160204, end: 20160207
  67. MUBROXOL [Concomitant]
     Dosage: UNK
     Route: 048
     Dates: start: 20160607, end: 20160614
  68. MUBROXOL [Concomitant]
     Dosage: UNK
     Route: 048
     Dates: start: 20161103, end: 20161108
  69. MUBROXOL [Concomitant]
     Dosage: UNK
     Route: 048
     Dates: start: 20161201, end: 20161208
  70. MUBROXOL [Concomitant]
     Dosage: UNK
     Route: 048
     Dates: start: 20170413, end: 20170420
  71. CYPRODIN [Concomitant]
     Indication: Pruritus
     Dosage: UNK
     Route: 048
     Dates: start: 20160121, end: 20160128
  72. CYPRODIN [Concomitant]
     Dosage: UNK
     Route: 048
     Dates: start: 20160204, end: 20160207
  73. VENTOLIN [Concomitant]
     Active Substance: ALBUTEROL SULFATE
     Indication: Asthma
     Dosage: UNK
     Route: 048
     Dates: start: 20160607, end: 20160612
  74. VENTOLIN [Concomitant]
     Active Substance: ALBUTEROL SULFATE
     Indication: Bronchitis
     Dosage: UNK
     Route: 048
     Dates: start: 20161124, end: 20161201
  75. VENTOLIN [Concomitant]
     Active Substance: ALBUTEROL SULFATE
     Indication: Bronchiectasis
     Dosage: UNK
     Route: 055
     Dates: start: 20180104, end: 20180118
  76. VENTOLIN [Concomitant]
     Active Substance: ALBUTEROL SULFATE
     Indication: Bronchospasm
  77. ANXIEDIN [Concomitant]
     Indication: Sleep disorder
     Dosage: UNK
     Route: 048
     Dates: start: 20170105, end: 20170108
  78. ANXIEDIN [Concomitant]
     Dosage: UNK
     Route: 048
     Dates: start: 20170112, end: 20170115
  79. ANXIEDIN [Concomitant]
     Dosage: UNK
     Route: 048
     Dates: start: 20170622, end: 20170625
  80. XANAX [Concomitant]
     Active Substance: ALPRAZOLAM
     Indication: Sleep disorder
     Dosage: UNK
     Route: 048
     Dates: start: 20170119, end: 20170126
  81. XANAX [Concomitant]
     Active Substance: ALPRAZOLAM
     Dosage: UNK
     Route: 048
     Dates: start: 20170127, end: 20170203
  82. XANAX [Concomitant]
     Active Substance: ALPRAZOLAM
     Dosage: UNK
     Route: 048
     Dates: start: 20170810, end: 20170813
  83. DICLOFENAC POTASSIUM [Concomitant]
     Active Substance: DICLOFENAC POTASSIUM
     Indication: Antiinflammatory therapy
     Dosage: UNK
     Route: 048
     Dates: start: 20170120, end: 20170127
  84. BISOLVON [Concomitant]
     Active Substance: BROMHEXINE HYDROCHLORIDE
     Dosage: UNK
     Route: 048
     Dates: start: 20170120, end: 20170127
  85. BISOLVON [Concomitant]
     Active Substance: BROMHEXINE HYDROCHLORIDE
     Dosage: UNK
     Route: 055
     Dates: start: 20170425, end: 20170426
  86. AZITHROMYCIN [Concomitant]
     Active Substance: AZITHROMYCIN
     Indication: Antibiotic therapy
     Dosage: UNK
     Route: 048
     Dates: start: 20170122, end: 20170125
  87. HYDROXYZINE PAMOATE [Concomitant]
     Active Substance: HYDROXYZINE PAMOATE
     Indication: Antiallergic therapy
     Dosage: UNK
     Route: 048
     Dates: start: 20170124, end: 20170124
  88. AMOXICILLIN\CLAVULANATE POTASSIUM [Concomitant]
     Active Substance: AMOXICILLIN\CLAVULANATE POTASSIUM
     Indication: Antibiotic therapy
     Dosage: UNK
     Route: 048
     Dates: start: 20170127, end: 20170203
  89. AMOXICILLIN\CLAVULANATE POTASSIUM [Concomitant]
     Active Substance: AMOXICILLIN\CLAVULANATE POTASSIUM
     Indication: Infection prophylaxis
     Dosage: UNK
     Route: 048
     Dates: start: 20171102, end: 20171116
  90. EXTRACOMB [Concomitant]
     Indication: Rash
     Dosage: UNK
     Route: 061
     Dates: start: 20170216, end: 20170302
  91. EXTRACOMB [Concomitant]
     Indication: Viral infection
     Dosage: UNK
     Route: 061
     Dates: start: 20180113, end: 20180126
  92. NEXIUM [Concomitant]
     Active Substance: ESOMEPRAZOLE MAGNESIUM
     Indication: Stress ulcer
     Dosage: UNK
     Route: 042
     Dates: start: 20170425, end: 20170425
  93. NEXIUM [Concomitant]
     Active Substance: ESOMEPRAZOLE MAGNESIUM
     Dosage: UNK
     Route: 042
     Dates: start: 20180107, end: 20180116
  94. VENTOLIN [Concomitant]
     Active Substance: ALBUTEROL SULFATE
     Indication: Bronchospasm
     Dosage: UNK
     Route: 055
     Dates: start: 20170425, end: 20170425
  95. DEXAMETHASONE [Concomitant]
     Active Substance: DEXAMETHASONE
     Indication: Allergy prophylaxis
     Dosage: UNK
     Route: 055
     Dates: start: 20170425, end: 20170425
  96. DEXAMETHASONE [Concomitant]
     Active Substance: DEXAMETHASONE
     Dosage: UNK
     Route: 055
     Dates: start: 20180104, end: 20180104
  97. SOLU-CORTEF [Concomitant]
     Active Substance: HYDROCORTISONE SODIUM SUCCINATE
     Indication: Allergy prophylaxis
     Dosage: UNK
     Route: 042
     Dates: start: 20170425, end: 20170425
  98. SOLU-CORTEF [Concomitant]
     Active Substance: HYDROCORTISONE SODIUM SUCCINATE
     Indication: Bronchospasm
     Dosage: UNK
     Route: 042
     Dates: start: 20180105, end: 20180113
  99. EPINEPHRINE [Concomitant]
     Active Substance: EPINEPHRINE
     Indication: Allergy prophylaxis
     Dosage: UNK
     Route: 055
     Dates: start: 20170425, end: 20170425
  100. EPINEPHRINE [Concomitant]
     Active Substance: EPINEPHRINE
     Indication: Shock
     Dosage: UNK
     Route: 042
     Dates: start: 20180120, end: 20180126
  101. SENOKOT [Concomitant]
     Active Substance: SENNOSIDES
     Indication: Constipation prophylaxis
     Dosage: UNK
     Route: 048
     Dates: start: 20170425, end: 20170430
  102. MAGNESIUM OXIDE [Concomitant]
     Active Substance: MAGNESIUM OXIDE
     Indication: Antacid therapy
     Dosage: UNK
     Route: 048
     Dates: start: 20170425, end: 20170426
  103. MAGNESIUM OXIDE [Concomitant]
     Active Substance: MAGNESIUM OXIDE
     Indication: Abdominal discomfort
     Dosage: UNK
     Route: 048
     Dates: start: 20180123, end: 20180125
  104. MAGNESIUM OXIDE [Concomitant]
     Active Substance: MAGNESIUM OXIDE
     Indication: Antacid therapy
  105. MAGNESIUM OXIDE [Concomitant]
     Active Substance: MAGNESIUM OXIDE
     Indication: Faeces soft
  106. VITACIN [Concomitant]
     Active Substance: CAPSAICIN\MENTHOL\METHYL SALICYLATE
     Indication: Vitamin C deficiency
     Dosage: UNK
     Route: 042
     Dates: start: 20170425, end: 20170426
  107. VITACIN [Concomitant]
     Active Substance: CAPSAICIN\MENTHOL\METHYL SALICYLATE
     Dosage: UNK
     Route: 042
     Dates: start: 20180105, end: 20180105
  108. NALBUPHINE [Concomitant]
     Active Substance: NALBUPHINE
     Indication: Procedural pain
     Dosage: UNK
     Route: 042
     Dates: start: 20170425, end: 20170426
  109. MEPERIDINE [Concomitant]
     Active Substance: MEPERIDINE
     Indication: Procedural pain
     Dosage: UNK
     Route: 030
     Dates: start: 20170425, end: 20170426
  110. SYNTREND [Concomitant]
     Indication: Cardiac failure
     Dosage: UNK
     Route: 048
     Dates: start: 20170601, end: 20171221
  111. SYNTREND [Concomitant]
     Indication: Hypertension
     Dosage: UNK
     Route: 048
     Dates: start: 20180108, end: 20180125
  112. SYNTREND [Concomitant]
     Indication: Cardiac failure
  113. CHLORAMPHENICOL [Concomitant]
     Active Substance: CHLORAMPHENICOL
     Indication: Ocular hyperaemia
     Dosage: UNK
     Route: 061
     Dates: start: 20170720, end: 20170727
  114. CHLORAMPHENICOL [Concomitant]
     Active Substance: CHLORAMPHENICOL
     Indication: Eye swelling
  115. OFTALMOLOSA CUSI GENTAMICINA [Concomitant]
     Indication: Ocular hyperaemia
     Dosage: UNK
     Route: 061
     Dates: start: 20170720, end: 20170727
  116. OFTALMOLOSA CUSI GENTAMICINA [Concomitant]
     Indication: Eye swelling
  117. CHLORPHENIRAMINE MALEATE [Concomitant]
     Active Substance: CHLORPHENIRAMINE MALEATE
     Indication: Antiallergic therapy
     Dosage: UNK
     Route: 048
     Dates: start: 20170907, end: 20170912
  118. CETIMIN [Concomitant]
     Indication: Antiallergic therapy
     Dosage: UNK
     Route: 048
     Dates: start: 20170928, end: 20171005
  119. FUROSEMIDE [Concomitant]
     Active Substance: FUROSEMIDE
     Indication: Mitral valve incompetence
     Dosage: UNK
     Route: 048
     Dates: start: 20171123, end: 20180126
  120. FUROSEMIDE [Concomitant]
     Active Substance: FUROSEMIDE
     Indication: Diuretic therapy
     Dosage: UNK
     Route: 048
     Dates: start: 20180108, end: 20180125
  121. FUROSEMIDE [Concomitant]
     Active Substance: FUROSEMIDE
     Indication: Oedema
  122. SPIRONOLACTONE [Concomitant]
     Active Substance: SPIRONOLACTONE
     Indication: Mitral valve incompetence
     Dosage: UNK
     Route: 048
     Dates: start: 20171123, end: 20180126
  123. SPIRONOLACTONE [Concomitant]
     Active Substance: SPIRONOLACTONE
     Indication: Cardiac failure
     Dosage: UNK
     Route: 048
     Dates: start: 20180115, end: 20180126
  124. SPIRONOLACTONE [Concomitant]
     Active Substance: SPIRONOLACTONE
     Indication: Hypertension
  125. SPIRONOLACTONE [Concomitant]
     Active Substance: SPIRONOLACTONE
     Indication: Diuretic therapy
  126. SPIRONOLACTONE [Concomitant]
     Active Substance: SPIRONOLACTONE
     Indication: Oedema
  127. SPIRONOLACTONE [Concomitant]
     Active Substance: SPIRONOLACTONE
     Indication: Hypertension
  128. MIDATIN [Concomitant]
     Indication: Respiratory failure
     Dosage: UNK
     Route: 042
     Dates: start: 20180104, end: 20180115
  129. KETALAR [Concomitant]
     Active Substance: KETAMINE HYDROCHLORIDE
     Indication: Sedation
     Dosage: UNK
     Route: 042
     Dates: start: 20180104, end: 20180105
  130. KETALAR [Concomitant]
     Active Substance: KETAMINE HYDROCHLORIDE
     Indication: Bronchospasm
     Dosage: UNK
     Route: 042
     Dates: start: 20180105, end: 20180105
  131. PROCATEROL HYDROCHLORIDE [Concomitant]
     Active Substance: PROCATEROL HYDROCHLORIDE
     Indication: Bronchospasm
     Dosage: UNK
     Route: 048
     Dates: start: 20180104, end: 20180113
  132. ATROPINE SULFATE [Concomitant]
     Active Substance: ATROPINE SULFATE
     Indication: Premedication
     Dosage: UNK
     Route: 042
     Dates: start: 20180104, end: 20180105
  133. Hemoclot [Concomitant]
     Indication: Respiratory failure
     Dosage: UNK
     Route: 042
     Dates: start: 20180105, end: 20180105
  134. Hemoclot [Concomitant]
     Indication: Haemostasis
     Dosage: UNK
     Route: 042
     Dates: start: 20180108, end: 20180124
  135. PHYTONADIONE [Concomitant]
     Active Substance: PHYTONADIONE
     Indication: Haemorrhage prophylaxis
     Dosage: UNK
     Route: 042
     Dates: start: 20180105, end: 20180105
  136. SODIUM BICARBONATE [Concomitant]
     Active Substance: SODIUM BICARBONATE
     Indication: Respiratory failure
     Dosage: UNK
     Route: 042
     Dates: start: 20180105, end: 20180105
  137. Vitacal [Concomitant]
     Indication: Respiratory failure
     Dosage: UNK
     Route: 042
     Dates: start: 20180105, end: 20180105
  138. ATRACURIUM BESYLATE [Concomitant]
     Active Substance: ATRACURIUM BESYLATE
     Indication: Sedation
     Dosage: UNK
     Route: 042
     Dates: start: 20180105, end: 20180126
  139. FUROSEMIDE [Concomitant]
     Active Substance: FUROSEMIDE
     Indication: Diuretic therapy
     Dosage: UNK
     Route: 042
     Dates: start: 20180105, end: 20180126
  140. FUROSEMIDE [Concomitant]
     Active Substance: FUROSEMIDE
     Indication: Oedema
  141. FUROSEMIDE [Concomitant]
     Active Substance: FUROSEMIDE
     Indication: Blood pressure decreased
  142. AGGLUTEX [Concomitant]
     Indication: Antiplatelet therapy
     Dosage: UNK
     Route: 042
     Dates: start: 20180105, end: 20180126
  143. KCL [Concomitant]
     Active Substance: POTASSIUM CHLORIDE
     Indication: Hypokalaemia
     Dosage: UNK
     Route: 042
     Dates: start: 20180108, end: 20180125
  144. GENTAMICIN [Concomitant]
     Active Substance: GENTAMICIN
     Indication: Antibiotic therapy
     Dosage: UNK
     Route: 042
     Dates: start: 20180108, end: 20180113
  145. GENTAMICIN [Concomitant]
     Active Substance: GENTAMICIN
     Indication: Sterilisation
  146. GENTAMICIN [Concomitant]
     Active Substance: GENTAMICIN
     Indication: Antiinflammatory therapy
  147. ANESVAN [Concomitant]
     Indication: Anaesthesia
     Dosage: UNK
     Route: 042
     Dates: start: 20180112, end: 20180126
  148. ANESVAN [Concomitant]
     Indication: Sedative therapy
  149. ZINC OXIDE [Concomitant]
     Active Substance: ZINC OXIDE
     Indication: Eczema
     Dosage: UNK
     Route: 061
     Dates: start: 20180112, end: 20180126
  150. ALBUMIN HUMAN [Concomitant]
     Active Substance: ALBUMIN HUMAN
     Indication: Hypoproteinaemia
     Dosage: UNK
     Route: 042
     Dates: start: 20180116, end: 20180121
  151. ALBUMIN HUMAN [Concomitant]
     Active Substance: ALBUMIN HUMAN
     Indication: Shock
  152. DIFLUCAN [Concomitant]
     Active Substance: FLUCONAZOLE
     Indication: Antifungal treatment
     Dosage: UNK
     Route: 042
     Dates: start: 20180116, end: 20180126
  153. CARBOMER [Concomitant]
     Active Substance: CARBOMER
     Indication: Dry eye
     Dosage: UNK
     Route: 061
     Dates: start: 20180117, end: 20180126
  154. MONTMORILLONITE [Concomitant]
     Active Substance: MONTMORILLONITE
     Indication: Antidiarrhoeal supportive care
     Dosage: UNK
     Route: 048
     Dates: start: 20180118, end: 20180119
  155. CANSEN [Concomitant]
     Indication: Fungal infection
     Dosage: UNK
     Route: 061
     Dates: start: 20180118, end: 20180126
  156. RADI K [Concomitant]
     Indication: Hypokalaemia
     Dosage: UNK
     Route: 048
     Dates: start: 20180119, end: 20180120
  157. PIPERACILLIN SODIUM\TAZOBACTAM SODIUM [Concomitant]
     Active Substance: PIPERACILLIN SODIUM\TAZOBACTAM SODIUM
     Indication: Antibiotic therapy
     Dosage: UNK
     Route: 042
     Dates: start: 20180121, end: 20180126
  158. THROUGH [Concomitant]
     Indication: Constipation
     Dosage: UNK
     Route: 048
     Dates: start: 20180123, end: 20180126
  159. FAMOTIDINE [Concomitant]
     Active Substance: FAMOTIDINE
     Indication: Antacid therapy
     Dosage: UNK
     Route: 042
     Dates: start: 20180125, end: 20180126
  160. FAMOTIDINE [Concomitant]
     Active Substance: FAMOTIDINE
     Indication: Ulcer
  161. LACTUL [Concomitant]
     Indication: Constipation
     Dosage: UNK
     Route: 048
     Dates: start: 20180125, end: 20180126
  162. FLUTICASONE PROPIONATE [Concomitant]
     Active Substance: FLUTICASONE PROPIONATE
     Indication: Asthma
     Dosage: UNK
     Route: 055
     Dates: start: 20180108, end: 20180108
  163. CEFLEXIN [Concomitant]
     Indication: Infection prophylaxis
     Dosage: UNK
     Route: 048
     Dates: start: 20151224, end: 20151224
  164. VITAMIN B COMPLEX [Concomitant]
     Active Substance: CYANOCOBALAMIN\DEXPANTHENOL\NIACINAMIDE\PYRIDOXINE HYDROCHLORIDE\RIBOFLAVIN 5^-PHOSPHATE SODIUM\THIA
     Indication: Nutritional supplement allergy
     Dosage: UNK
     Route: 042
     Dates: start: 20170425, end: 20170425
  165. VITAMIN B COMPLEX [Concomitant]
     Active Substance: CYANOCOBALAMIN\DEXPANTHENOL\NIACINAMIDE\PYRIDOXINE HYDROCHLORIDE\RIBOFLAVIN 5^-PHOSPHATE SODIUM\THIA
     Indication: Vitamin supplementation

REACTIONS (4)
  - Pneumothorax [Fatal]
  - Respiratory failure [Fatal]
  - Bronchospasm [Fatal]
  - Pneumonia aspiration [Unknown]

NARRATIVE: CASE EVENT DATE: 20180104
